FAERS Safety Report 4347557-7 (Version None)
Quarter: 2004Q2

REPORT INFORMATION
  Report Type: 
  Country: None (occurrence: None)
  Receive Date: 20040422
  Receipt Date: 20040408
  Transmission Date: 20050107
  Serious: Yes (Hospitalization, Disabling)
  Sender: FDA-Public Use
  Company Number: 002#4#2003-00416

PATIENT
  Age: 52 Year
  Sex: Male

DRUGS (1)
  1. CHLORPHENIRAMINE MALEATE AND PHENYLPROPANOLAMINE HCL [Suspect]
     Dosage: ORAL
     Route: 048
     Dates: start: 19990721, end: 19990724

REACTIONS (9)
  - ACQUIRED DYSFIBRINOGENAEMIA [None]
  - ANTITHROMBIN III DECREASED [None]
  - BASAL GANGLION DEGENERATION [None]
  - CEREBRAL ARTERY OCCLUSION [None]
  - COAGULATION FACTOR VIII LEVEL INCREASED [None]
  - HAEMORRHAGE [None]
  - HYPERCOAGULATION [None]
  - ISCHAEMIC STROKE [None]
  - THROMBIN TIME PROLONGED [None]
